FAERS Safety Report 19980212 (Version 1)
Quarter: 2021Q4

REPORT INFORMATION
  Report Type: Report from Study
  Country: IL (occurrence: IL)
  Receive Date: 20211021
  Receipt Date: 20211021
  Transmission Date: 20220303
  Serious: Yes (Other)
  Sender: FDA-Public Use
  Company Number: IL-NOVARTISPH-NVSC2021IL238123

PATIENT
  Age: 65 Year
  Sex: Male
  Weight: 110 kg

DRUGS (1)
  1. COSENTYX [Suspect]
     Active Substance: SECUKINUMAB
     Indication: Psoriatic arthropathy
     Dosage: 300 MG, QMO
     Route: 058
     Dates: start: 20200305

REACTIONS (1)
  - Abnormal weight gain [Recovered/Resolved]
